FAERS Safety Report 6648940-7 (Version None)
Quarter: 2010Q1

REPORT INFORMATION
  Report Type: 
  Country: None (occurrence: None)
  Receive Date: 20100319
  Receipt Date: 20100309
  Transmission Date: 20100710
  Serious: Yes (Other)
  Sender: FDA-Public Use
  Company Number: 2010SCPR000408

PATIENT
  Age: 16 Year

DRUGS (2)
  1. DOXEPIN HYDROCHLORIDE [Suspect]
     Indication: DRUG USE FOR UNKNOWN INDICATION
  2. MOCLOBEMIDE (MOCLOBEMIDE) UNKNOWN [Suspect]
     Indication: DRUG USE FOR UNKNOWN INDICATION

REACTIONS (3)
  - DRUG TOXICITY [None]
  - HYPOTHERMIA [None]
  - SUICIDE ATTEMPT [None]
